FAERS Safety Report 21822436 (Version 3)
Quarter: 2023Q2

REPORT INFORMATION
  Report Type: Spontaneous
  Country: BR (occurrence: BR)
  Receive Date: 20230105
  Receipt Date: 20230403
  Transmission Date: 20230721
  Serious: Yes (Other)
  Sender: FDA-Public Use
  Company Number: BR-TAKEDA-2022TUS097002

PATIENT
  Sex: Female
  Weight: 84 kg

DRUGS (3)
  1. LISDEXAMFETAMINE DIMESYLATE [Suspect]
     Active Substance: LISDEXAMFETAMINE DIMESYLATE
     Indication: Attention deficit hyperactivity disorder
     Dosage: UNK UNK, QD
     Route: 065
  2. LISDEXAMFETAMINE DIMESYLATE [Suspect]
     Active Substance: LISDEXAMFETAMINE DIMESYLATE
     Dosage: UNK UNK, QD
     Route: 065
     Dates: start: 20220601
  3. LISDEXAMFETAMINE DIMESYLATE [Suspect]
     Active Substance: LISDEXAMFETAMINE DIMESYLATE
     Dosage: UNK
     Route: 065
     Dates: start: 20220606

REACTIONS (16)
  - Intestinal obstruction [Unknown]
  - Malaise [Unknown]
  - Disturbance in attention [Unknown]
  - Feeling abnormal [Unknown]
  - Discouragement [Unknown]
  - Mood altered [Unknown]
  - Thirst decreased [Unknown]
  - Fear [Unknown]
  - Therapeutic product effect decreased [Unknown]
  - Drug ineffective [Unknown]
  - Product physical issue [Unknown]
  - Headache [Unknown]
  - Constipation [Unknown]
  - Irritability [Unknown]
  - Dry mouth [Unknown]
  - Inappropriate schedule of product administration [Unknown]
